FAERS Safety Report 24211646 (Version 1)
Quarter: 2024Q3

REPORT INFORMATION
  Report Type: Spontaneous
  Country: ES (occurrence: ES)
  Receive Date: 20240814
  Receipt Date: 20240814
  Transmission Date: 20241017
  Serious: Yes (Hospitalization, Other)
  Sender: MERCK
  Company Number: None

PATIENT
  Age: 84 Year
  Sex: Male

DRUGS (2)
  1. ERTAPENEM SODIUM [Suspect]
     Active Substance: ERTAPENEM SODIUM
     Indication: Pyelonephritis acute
     Dosage: 1 A DAY
     Route: 042
     Dates: start: 20240122, end: 20240129
  2. LACTULOSA LAINCO [Concomitant]
     Indication: Constipation
     Dosage: 1 EVERY 12 HOURS
     Route: 048
     Dates: start: 20240126, end: 20240129

REACTIONS (2)
  - Clostridial sepsis [Recovered/Resolved]
  - Clostridium difficile colitis [Recovered/Resolved]

NARRATIVE: CASE EVENT DATE: 20240129
